FAERS Safety Report 16105445 (Version 1)
Quarter: 2019Q1

REPORT INFORMATION
  Report Type: Report from Study
  Country: IT (occurrence: IT)
  Receive Date: 20190322
  Receipt Date: 20190322
  Transmission Date: 20190418
  Serious: Yes (Other)
  Sender: FDA-Public Use
  Company Number: IT-PFIZER INC-2019119341

PATIENT
  Age: 11 Year
  Sex: Female
  Weight: 60 kg

DRUGS (12)
  1. MYCOSTATIN [Concomitant]
     Active Substance: NYSTATIN
     Dosage: 15 ML, UNK
     Route: 048
  2. METHOTREXATE SODIUM. [Suspect]
     Active Substance: METHOTREXATE SODIUM
     Indication: ACUTE LYMPHOCYTIC LEUKAEMIA
     Dosage: 12 MG, CYCLIC
     Route: 042
     Dates: start: 20180910
  3. ZOFRAN [Concomitant]
     Active Substance: ONDANSETRON HYDROCHLORIDE
     Dosage: 8 MG, UNK
     Route: 042
  4. PAXABEL [Concomitant]
     Dosage: 10 G, UNK
     Route: 048
  5. DECADRON [Concomitant]
     Active Substance: DEXAMETHASONE
     Dosage: 15.4 MG, UNK
     Route: 048
  6. PEGASPARGASE [Suspect]
     Active Substance: PEGASPARGASE
     Indication: ACUTE LYMPHOCYTIC LEUKAEMIA
     Dosage: 3750 KIU, CYCLIC
     Route: 042
     Dates: start: 20180920
  7. ANTRA [OMEPRAZOLE MAGNESIUM] [Concomitant]
     Dosage: 40 MG, UNK
     Route: 042
  8. CIPROXIN [CIPROFLOXACIN] [Concomitant]
     Dosage: 1000 MG, UNK
  9. URBASON [METHYLPREDNISOLONE] [Concomitant]
     Active Substance: METHYLPREDNISOLONE
     Dosage: 10 MG, UNK
     Route: 042
     Dates: start: 20180910, end: 20180924
  10. VINCRISTINE SULFATE. [Suspect]
     Active Substance: VINCRISTINE SULFATE
     Indication: ACUTE LYMPHOCYTIC LEUKAEMIA
     Dosage: 2 MG, CYCLIC
     Route: 042
     Dates: start: 20180917
  11. ANTITHROMBIN III HUMAN [Concomitant]
     Active Substance: ANTITHROMBIN III HUMAN
     Dosage: 1000 KIU, UNK
     Route: 042
  12. DAUNOBLASTINA [Suspect]
     Active Substance: DAUNORUBICIN
     Indication: ACUTE LYMPHOCYTIC LEUKAEMIA
     Dosage: 46.2 MG, CYCLIC
     Route: 042
     Dates: start: 20180917

REACTIONS (2)
  - Leukopenia [Recovered/Resolved]
  - Neutropenia [Recovered/Resolved]

NARRATIVE: CASE EVENT DATE: 20180927
